FAERS Safety Report 11384678 (Version 1)
Quarter: 2015Q3

REPORT INFORMATION
  Report Type: Spontaneous
  Country: US (occurrence: US)
  Receive Date: 20150811
  Receipt Date: 20150811
  Transmission Date: 20151125
  Serious: No
  Sender: FDA-Public Use
  Company Number: US-ELI_LILLY_AND_COMPANY-US201107003176

PATIENT
  Age: 67 Year
  Sex: Male

DRUGS (1)
  1. ADCIRCA [Suspect]
     Active Substance: TADALAFIL
     Dosage: 40 MG, QD
     Dates: start: 20110504

REACTIONS (2)
  - Dehydration [Unknown]
  - Feeling hot [Unknown]

NARRATIVE: CASE EVENT DATE: 20110707
